FAERS Safety Report 19738030 (Version 1)
Quarter: 2021Q3

REPORT INFORMATION
  Report Type: Spontaneous
  Country: US (occurrence: US)
  Receive Date: 20210820
  Receipt Date: 20210820
  Transmission Date: 20211014
  Serious: Yes (Hospitalization)
  Sender: FDA-Public Use
  Company Number: None

PATIENT
  Sex: Male

DRUGS (1)
  1. TEMOZOLOMIDE 140MG AMNEAL PHARMACEUTICALS [Suspect]
     Active Substance: TEMOZOLOMIDE
     Indication: BRAIN NEOPLASM MALIGNANT
     Dosage: OSE WAS CHANGED TO 200MG DAILY FOR 5 DAYS/28?DAY CYCLE SHIPPED ON 08/16/2021
     Route: 048
     Dates: start: 202105

REACTIONS (3)
  - Anger [None]
  - Hallucination, auditory [None]
  - Delusion [None]
